FAERS Safety Report 8826556 (Version 1)
Quarter: 2012Q4

REPORT INFORMATION
  Report Type: 
  Country: JP (occurrence: JP)
  Receive Date: 20121007
  Receipt Date: 20121007
  Transmission Date: 20130627
  Serious: Yes (Hospitalization)
  Sender: FDA-Public Use
  Company Number: JP-MYLANLABS-2012S1020014

PATIENT
  Age: 19 Year
  Sex: Male
  Weight: 53 kg

DRUGS (8)
  1. REMICADE [Suspect]
     Indication: JUVENILE ARTHRITIS
     Dosage: 100 mg/dose given 0.2 + 6 weeks after normal roentgenogram + then every 8 weeks for 9 months
  2. REMICADE [Interacting]
     Indication: JUVENILE ARTHRITIS
     Dosage: 200mg every 5-6w
  3. METHOTREXATE [Suspect]
     Indication: JUVENILE ARTHRITIS
     Dosage: 7.5 mg/w
  4. CISPLATIN [Suspect]
     Indication: GERM CELL CANCER
     Dosage: 20 mg/m2 on days 1-5, every 3 weeks for four cycles
  5. BLEOMYCIN [Suspect]
     Indication: GERM CELL CANCER
     Dosage: 15 mg/m2 on day 2, every 3 weeks for four cycles
  6. ETOPOSIDE [Suspect]
     Indication: GERM CELL CANCER
     Dosage: 120 mg/m2 on days 1-3, every 3 weeks for four cycles
  7. PREDNISOLONE [Concomitant]
     Indication: JUVENILE ARTHRITIS
     Dosage: 10 mg/d
  8. PREDNISOLONE [Concomitant]
     Indication: JUVENILE ARTHRITIS
     Dosage: 2.5 mg/d

REACTIONS (4)
  - Germ cell cancer [Recovered/Resolved]
  - Stomatitis [Unknown]
  - Bone marrow failure [Unknown]
  - Chemotherapeutic drug level increased [Recovered/Resolved]
